FAERS Safety Report 11229844 (Version 1)
Quarter: 2015Q2

REPORT INFORMATION
  Report Type: Spontaneous
  Country: US (occurrence: US)
  Receive Date: 20150630
  Receipt Date: 20150630
  Transmission Date: 20150821
  Serious: No
  Sender: FDA-Public Use
  Company Number: US-BAUSCH-BL-2014-010844

PATIENT
  Age: 24 Year
  Sex: Female

DRUGS (7)
  1. OFLOXACIN OPHTHALMIC [Suspect]
     Active Substance: OFLOXACIN
     Indication: CONJUNCTIVITIS
     Dates: start: 20141212
  2. OFLOXACIN OPHTHALMIC [Suspect]
     Active Substance: OFLOXACIN
     Indication: CELLULITIS
  3. OFLOXACIN OTIC [Suspect]
     Active Substance: OFLOXACIN
     Indication: CONJUNCTIVITIS
     Dosage: APPLIED 2 DROPS IN BOTH EYES
     Route: 047
     Dates: start: 20141203, end: 20141205
  4. POLYTRIM [Suspect]
     Active Substance: POLYMYXIN B SULFATE\TRIMETHOPRIM SULFATE
     Indication: CONJUNCTIVITIS
     Route: 047
     Dates: start: 20141205, end: 20141210
  5. OFLOXACIN OTIC [Suspect]
     Active Substance: OFLOXACIN
     Indication: CELLULITIS
     Dosage: APPLIED 2 DROPS IN BOTH EYES
     Route: 047
     Dates: start: 20141211, end: 20141211
  6. KEFLEX [Suspect]
     Active Substance: CEPHALEXIN
     Indication: PRODUCT USED FOR UNKNOWN INDICATION
     Dates: start: 20141211
  7. GENTAMICIN. [Suspect]
     Active Substance: GENTAMICIN
     Indication: CONJUNCTIVITIS
     Route: 047
     Dates: start: 20141201, end: 20141203

REACTIONS (4)
  - Conjunctivitis [Not Recovered/Not Resolved]
  - Incorrect drug dosage form administered [Unknown]
  - Condition aggravated [Unknown]
  - Drug dispensing error [Unknown]

NARRATIVE: CASE EVENT DATE: 20141203
